FAERS Safety Report 5029619-4 (Version None)
Quarter: 2006Q2

REPORT INFORMATION
  Report Type: 
  Country: None (occurrence: None)
  Receive Date: 20060620
  Receipt Date: 20060608
  Transmission Date: 20061013
  Serious: Yes (Hospitalization)
  Sender: FDA-Public Use
  Company Number: US-KINGPHARMUSA00001-K200600749

PATIENT
  Age: 48 Year
  Sex: Female
  Weight: 112 kg

DRUGS (1)
  1. SKELAXIN [Suspect]
     Indication: NECK PAIN
     Dosage: 800 MG, QD
     Route: 048
     Dates: start: 19990101, end: 20060604

REACTIONS (3)
  - ATRIAL FIBRILLATION [None]
  - CHEST PAIN [None]
  - DYSPNOEA [None]
